FAERS Safety Report 7769670-4 (Version None)
Quarter: 2011Q3

REPORT INFORMATION
  Report Type: 
  Country: None (occurrence: None)
  Receive Date: 20110922
  Receipt Date: 20100826
  Transmission Date: 20111222
  Serious: Yes (Hospitalization, Other)
  Sender: FDA-Public Use
  Company Number: US-ASTRAZENECA-2007UW21489

PATIENT
  Age: 27 Year
  Sex: Female
  Weight: 115.7 kg

DRUGS (7)
  1. SEROQUEL [Suspect]
     Indication: MOOD SWINGS
     Route: 048
     Dates: start: 20050919, end: 20061128
  2. SEROQUEL [Suspect]
     Indication: DEPRESSION
     Route: 048
     Dates: start: 20050919, end: 20061128
  3. SEROQUEL [Suspect]
     Dosage: 25 MG-200 MG DAILY
     Route: 048
     Dates: start: 20051004, end: 20061101
  4. ELAVIL [Concomitant]
     Dosage: 10 MG-25 MG DAILY
     Route: 048
     Dates: start: 20050223
  5. ABILIFY [Concomitant]
     Dates: start: 20070103
  6. SEROQUEL [Suspect]
     Dosage: 25 MG-200 MG DAILY
     Route: 048
     Dates: start: 20051004, end: 20061101
  7. IBUPROFEN [Concomitant]
     Dosage: STRENGTH: 600 MG-800 MG
     Route: 042
     Dates: start: 20031008

REACTIONS (6)
  - HYPERLIPIDAEMIA [None]
  - BLOOD CHOLESTEROL INCREASED [None]
  - DIABETIC KETOACIDOSIS [None]
  - DIABETES MELLITUS [None]
  - TYPE 1 DIABETES MELLITUS [None]
  - DIABETIC COMPLICATION [None]
